FAERS Safety Report 19809235 (Version 2)
Quarter: 2024Q2

REPORT INFORMATION
  Report Type: Spontaneous
  Country: US (occurrence: None)
  Receive Date: 20210908
  Receipt Date: 20240607
  Transmission Date: 20240716
  Serious: No
  Sender: FDA-Public Use
  Company Number: 2021A703495

PATIENT
  Sex: Male
  Weight: 88.5 kg

DRUGS (4)
  1. BYDUREON BCISE [Suspect]
     Active Substance: EXENATIDE
     Indication: Diabetes mellitus
     Route: 058
  2. BYDUREON [Suspect]
     Active Substance: EXENATIDE
     Indication: Diabetes mellitus
     Dosage: 2.0MG ONCE/SINGLE ADMINISTRATION
     Route: 058
  3. GLIPIZIDE [Concomitant]
     Active Substance: GLIPIZIDE
  4. ACARBOSE [Concomitant]
     Active Substance: ACARBOSE

REACTIONS (3)
  - Device delivery system issue [Unknown]
  - Injection site haemorrhage [Unknown]
  - Adverse reaction [Unknown]
